FAERS Safety Report 25656724 (Version 1)
Quarter: 2025Q3

REPORT INFORMATION
  Report Type: Spontaneous
  Country: MX (occurrence: MX)
  Receive Date: 20250807
  Receipt Date: 20250807
  Transmission Date: 20251021
  Serious: Yes (Death, Other)
  Sender: TAKEDA
  Company Number: MX-TAKEDA-2024TUS057342

PATIENT
  Sex: Female
  Weight: 63 kg

DRUGS (5)
  1. PONATINIB [Suspect]
     Active Substance: PONATINIB
     Indication: Chronic myeloid leukaemia
  2. PONATINIB [Suspect]
     Active Substance: PONATINIB
  3. PONATINIB [Suspect]
     Active Substance: PONATINIB
  4. PONATINIB [Suspect]
     Active Substance: PONATINIB
     Dosage: 45 MILLIGRAM, QD
     Dates: start: 20240823
  5. PONATINIB [Suspect]
     Active Substance: PONATINIB

REACTIONS (3)
  - Chronic myeloid leukaemia [Fatal]
  - Product dose omission issue [Unknown]
  - Treatment noncompliance [Unknown]
